FAERS Safety Report 4354841-X (Version None)
Quarter: 2004Q2

REPORT INFORMATION
  Report Type: 
  Country: None (occurrence: None)
  Receive Date: 20040507
  Receipt Date: 20040211
  Transmission Date: 20050107
  Serious: Yes (Life-Threatening, Hospitalization)
  Sender: FDA-Public Use
  Company Number: FR-GLAXOSMITHKLINE-B0322998A

PATIENT
  Age: 34 Year
  Sex: Male
  Weight: 75 kg

DRUGS (2)
  1. IMIJECT [Suspect]
     Indication: ANGIOPATHY
     Dosage: 6MG SEE DOSAGE TEXT
     Route: 058
     Dates: start: 20031110, end: 20031130
  2. ISOPTIN [Suspect]
     Indication: ANGIOPATHY
     Dosage: 720MG PER DAY
     Route: 048
     Dates: start: 20031110, end: 20031130

REACTIONS (24)
  - AKINESIA [None]
  - ANOXIA [None]
  - ANOXIC ENCEPHALOPATHY [None]
  - BRAIN OEDEMA [None]
  - C-REACTIVE PROTEIN INCREASED [None]
  - CARDIAC ARREST [None]
  - CHEST PAIN [None]
  - CHEST X-RAY ABNORMAL [None]
  - COMA [None]
  - CONVULSION [None]
  - CORONARY ARTERY OCCLUSION [None]
  - EJECTION FRACTION DECREASED [None]
  - ENCEPHALOPATHY [None]
  - HYPERTONIA [None]
  - MALAISE [None]
  - MYDRIASIS [None]
  - MYOCARDIAL INFARCTION [None]
  - OVERDOSE [None]
  - PNEUMONIA ASPIRATION [None]
  - PYREXIA [None]
  - SELF-MEDICATION [None]
  - VENTRICULAR ARRHYTHMIA [None]
  - VENTRICULAR DYSFUNCTION [None]
  - VENTRICULAR HYPOKINESIA [None]
